FAERS Safety Report 7384533-4 (Version None)
Quarter: 2011Q1

REPORT INFORMATION
  Report Type: 
  Country: None (occurrence: None)
  Receive Date: 20110330
  Receipt Date: 20110329
  Transmission Date: 20110831
  Serious: No
  Sender: FDA-Public Use
  Company Number: US-PFIZER INC-2011070474

PATIENT
  Sex: Male

DRUGS (4)
  1. ADVIL COLD AND SINUS [Suspect]
     Indication: HEADACHE
     Dosage: 200 MG, UNK
     Route: 048
     Dates: start: 20110301, end: 20110301
  2. ADVIL COLD AND SINUS [Suspect]
     Indication: SINUS DISORDER
  3. ADVIL COLD AND SINUS [Suspect]
     Indication: PAIN
  4. ADVIL COLD AND SINUS [Suspect]

REACTIONS (1)
  - DRUG INEFFECTIVE [None]
